FAERS Safety Report 5389820-7 (Version None)
Quarter: 2007Q3

REPORT INFORMATION
  Report Type: 
  Country: None (occurrence: None)
  Receive Date: 20070718
  Receipt Date: 20070709
  Transmission Date: 20080115
  Serious: Yes (Other)
  Sender: FDA-Public Use
  Company Number: PHNU2007BG02461

PATIENT
  Age: 12 Year
  Sex: Female
  Weight: 30 kg

DRUGS (4)
  1. LEPONEX [Suspect]
     Indication: SCHIZOPHRENIA, DISORGANISED TYPE
     Dosage: 100 MG, BID
     Route: 048
     Dates: start: 20070501
  2. SOLIAN [Suspect]
     Indication: SCHIZOPHRENIA, DISORGANISED TYPE
     Dosage: 400MG/DAY
     Dates: end: 20070501
  3. RISPOLEPT [Concomitant]
  4. PARKIZAN [Concomitant]
     Dosage: 6MG/DAY

REACTIONS (6)
  - DERMATITIS ACNEIFORM [None]
  - DRY MOUTH [None]
  - DYSPHAGIA [None]
  - EOSINOPHIL COUNT INCREASED [None]
  - TACHYCARDIA [None]
  - WHITE BLOOD CELL COUNT INCREASED [None]
